APPROVED DRUG PRODUCT: DAPTOMYCIN
Active Ingredient: DAPTOMYCIN
Strength: 350MG/VIAL
Dosage Form/Route: POWDER;INTRAVENOUS
Application: A213786 | Product #001 | TE Code: AP
Applicant: MEITHEAL PHARMACEUTICALS INC
Approved: Jun 29, 2021 | RLD: No | RS: No | Type: RX